FAERS Safety Report 4634763-7 (Version None)
Quarter: 2005Q2

REPORT INFORMATION
  Report Type: 
  Country: None (occurrence: None)
  Receive Date: 20050412
  Receipt Date: 20050412
  Transmission Date: 20051028
  Serious: No
  Sender: FDA-Public Use
  Company Number: None

PATIENT
  Age: 53 Year
  Sex: Female
  Weight: 79.3795 kg

DRUGS (2)
  1. TRAZADONE   50MG    GENERIC [Suspect]
     Indication: DEPRESSION
     Dosage: 150MG   DAILY   ORAL
     Route: 047
     Dates: start: 19970325, end: 20050213
  2. TRAZADONE   50MG    GENERIC [Suspect]
     Indication: INSOMNIA
     Dosage: 150MG   DAILY   ORAL
     Route: 047
     Dates: start: 19970325, end: 20050213

REACTIONS (1)
  - ARRHYTHMIA [None]
